FAERS Safety Report 8004206-4 (Version None)
Quarter: 2011Q4

REPORT INFORMATION
  Report Type: 
  Country: None (occurrence: None)
  Receive Date: 20111223
  Receipt Date: 20111214
  Transmission Date: 20120403
  Serious: Yes (Hospitalization)
  Sender: FDA-Public Use
  Company Number: US-BIOGENIDEC-2011BI002467

PATIENT
  Age: 62 Year
  Sex: Female

DRUGS (3)
  1. TYSABRI [Suspect]
     Indication: MULTIPLE SCLEROSIS
     Route: 042
     Dates: start: 20081117, end: 20101104
  2. NEURONTIN [Concomitant]
     Indication: BURNING SENSATION
  3. TYSABRI [Suspect]
     Route: 042
     Dates: start: 20110408

REACTIONS (5)
  - HERPES ZOSTER [None]
  - PRURITUS [None]
  - VISION BLURRED [None]
  - BLINDNESS [None]
  - GENERAL SYMPTOM [None]
